FAERS Safety Report 14312417 (Version 15)
Quarter: 2024Q1

REPORT INFORMATION
  Report Type: Spontaneous
  Country: DE (occurrence: DE)
  Receive Date: 20171221
  Receipt Date: 20240216
  Transmission Date: 20240409
  Serious: Yes (Death, Hospitalization, Other)
  Sender: FDA-Public Use
  Company Number: DE-BOEHRINGERINGELHEIM-2017-BI-064635

PATIENT
  Age: 78 Year
  Sex: Male

DRUGS (58)
  1. QUETIAPINE [Suspect]
     Active Substance: QUETIAPINE
     Indication: Delirium
     Dosage: AS HIGH AS TOLERATED BY THE PATIENT
     Route: 048
     Dates: start: 20160101
  2. QUETIAPINE [Suspect]
     Active Substance: QUETIAPINE
     Indication: Dementia with Lewy bodies
     Dosage: 150 MILLIGRAM, DAILY
     Route: 048
     Dates: start: 20160101
  3. QUETIAPINE [Suspect]
     Active Substance: QUETIAPINE
     Indication: Aggression
     Dosage: (HIGH DOSE) (1)
     Route: 048
     Dates: start: 2016
  4. QUETIAPINE [Suspect]
     Active Substance: QUETIAPINE
     Dosage: 100 MG/D (FINAL DOSE)
     Route: 048
     Dates: start: 20160101
  5. QUETIAPINE [Suspect]
     Active Substance: QUETIAPINE
     Dosage: AS HIGH AS TOLERATED
     Route: 065
  6. QUETIAPINE [Suspect]
     Active Substance: QUETIAPINE
     Dosage: 100 MG, QD
     Route: 065
     Dates: start: 20170101
  7. QUETIAPINE [Suspect]
     Active Substance: QUETIAPINE
     Dosage: 100 MG, QD
     Route: 065
     Dates: start: 2017
  8. AMPICILLIN AND SULBACTAM [Suspect]
     Active Substance: AMPICILLIN SODIUM\SULBACTAM SODIUM
     Indication: Pneumonia
     Dosage: UNK
     Route: 065
     Dates: start: 201601
  9. AMPICILLIN AND SULBACTAM [Suspect]
     Active Substance: AMPICILLIN SODIUM\SULBACTAM SODIUM
     Dosage: UNK
     Route: 065
     Dates: start: 20160101
  10. PAROXETINE [Suspect]
     Active Substance: PAROXETINE
     Indication: Aggression
     Dosage: 10 MG, QD
     Route: 065
     Dates: start: 2017
  11. PAROXETINE [Suspect]
     Active Substance: PAROXETINE
     Indication: Delirium
     Dosage: 10 MG, QD
     Route: 065
     Dates: start: 20170101
  12. PAROXETINE [Suspect]
     Active Substance: PAROXETINE
     Indication: Agitation
  13. LORAZEPAM [Suspect]
     Active Substance: LORAZEPAM
     Indication: Delirium
     Dosage: UNK, ONCE A DAY
     Route: 065
     Dates: start: 2016
  14. LORAZEPAM [Suspect]
     Active Substance: LORAZEPAM
     Indication: Dementia with Lewy bodies
     Dosage: UNK, ONCE A DAY
     Route: 065
     Dates: start: 20160101
  15. LORAZEPAM [Suspect]
     Active Substance: LORAZEPAM
     Indication: Agitation
  16. LORAZEPAM [Suspect]
     Active Substance: LORAZEPAM
     Indication: Aggression
  17. SPIRIVA [Suspect]
     Active Substance: TIOTROPIUM BROMIDE MONOHYDRATE
     Indication: Pneumonia
     Dosage: UNK
     Route: 065
     Dates: start: 201601
  18. FORMOTEROL FUMARATE [Suspect]
     Active Substance: FORMOTEROL FUMARATE
     Indication: Pneumonia
     Dosage: 20 MG, QD
     Route: 065
     Dates: start: 201601
  19. FORMOTEROL FUMARATE [Suspect]
     Active Substance: FORMOTEROL FUMARATE
     Dosage: UNK
     Route: 065
  20. DEXTROMETHORPHAN [Suspect]
     Active Substance: DEXTROMETHORPHAN
     Indication: Agitation
     Dosage: DOSE INCREASED, TWO DIVIDED DOSES
     Route: 065
     Dates: start: 2017
  21. DEXTROMETHORPHAN [Suspect]
     Active Substance: DEXTROMETHORPHAN
     Indication: Delirium
     Dosage: 24 MILLIGRAM, DAILY
     Route: 065
     Dates: start: 20170101
  22. DEXTROMETHORPHAN [Suspect]
     Active Substance: DEXTROMETHORPHAN
     Indication: Aggression
     Dosage: 40 MG, DIVIDED INTO 2 DOSAGES
     Route: 065
     Dates: start: 2017
  23. DEXTROMETHORPHAN [Suspect]
     Active Substance: DEXTROMETHORPHAN
     Dosage: 24 MILLIGRAM, DAILY
     Route: 065
     Dates: start: 20170101
  24. FLUPENTIXOL [Suspect]
     Active Substance: FLUPENTIXOL
     Indication: Dementia with Lewy bodies
     Dosage: AS HIGH AS TOLERATED
     Route: 048
  25. FLUPENTIXOL [Suspect]
     Active Substance: FLUPENTIXOL
     Indication: Aggression
     Dosage: 20 MG/D
     Route: 048
  26. FLUPENTIXOL [Suspect]
     Active Substance: FLUPENTIXOL
     Indication: Delirium
     Dosage: 20 MG,QD
     Route: 048
  27. FLUPENTIXOL [Suspect]
     Active Substance: FLUPENTIXOL
     Indication: Pneumonia
     Dosage: UNK UNK,UNK
     Route: 048
  28. FLUPENTIXOL [Suspect]
     Active Substance: FLUPENTIXOL
     Indication: Agitation
  29. FLUPENTIXOL [Suspect]
     Active Substance: FLUPENTIXOL
     Indication: Paranoia
  30. FLUPENTIXOL [Suspect]
     Active Substance: FLUPENTIXOL
     Indication: Hangover
  31. FLUPENTIXOL [Suspect]
     Active Substance: FLUPENTIXOL
     Indication: Poor quality sleep
  32. DRONABINOL [Suspect]
     Active Substance: DRONABINOL
     Indication: Dementia with Lewy bodies
     Dosage: 15 MG,QD
     Route: 065
     Dates: start: 20160101
  33. DRONABINOL [Suspect]
     Active Substance: DRONABINOL
     Indication: Delirium
     Dosage: 15 MG, UNK
     Route: 065
     Dates: start: 20160201
  34. DRONABINOL [Suspect]
     Active Substance: DRONABINOL
     Indication: Aggression
     Dosage: 2.5 MILLIGRAM, ONCE A DAY
     Route: 065
     Dates: start: 20160101
  35. DRONABINOL [Suspect]
     Active Substance: DRONABINOL
     Indication: Delirium
     Dosage: UNK
     Route: 065
     Dates: start: 20160101
  36. RIVASTIGMINE [Concomitant]
     Active Substance: RIVASTIGMINE
     Indication: Aggression
     Dosage: UNK, ONCE A DAY
     Route: 065
  37. RIVASTIGMINE [Concomitant]
     Active Substance: RIVASTIGMINE
     Indication: Dementia with Lewy bodies
  38. RIVASTIGMINE [Concomitant]
     Active Substance: RIVASTIGMINE
     Indication: Delirium
  39. RIVASTIGMINE [Concomitant]
     Active Substance: RIVASTIGMINE
     Indication: Agitation
  40. DIAZEPAM [Concomitant]
     Active Substance: DIAZEPAM
     Indication: Aggression
     Dosage: (HIGH DOSE)
     Route: 065
  41. DIAZEPAM [Concomitant]
     Active Substance: DIAZEPAM
     Indication: Delirium
  42. DONEPEZIL [Concomitant]
     Active Substance: DONEPEZIL
     Indication: Aggression
     Dosage: UNK
     Route: 065
  43. DONEPEZIL [Concomitant]
     Active Substance: DONEPEZIL
     Indication: Delirium
     Dosage: UNK
     Route: 065
  44. DONEPEZIL [Concomitant]
     Active Substance: DONEPEZIL
     Indication: Dementia with Lewy bodies
  45. MIRTAZAPINE [Concomitant]
     Active Substance: MIRTAZAPINE
     Indication: Delirium
     Dosage: (HIGH DOSE)
     Route: 065
  46. MIRTAZAPINE [Concomitant]
     Active Substance: MIRTAZAPINE
     Indication: Aggression
  47. TRAZODONE [Concomitant]
     Active Substance: TRAZODONE HYDROCHLORIDE
     Indication: Delirium
     Dosage: (HIGH DOSE)
     Route: 065
  48. TRAZODONE [Concomitant]
     Active Substance: TRAZODONE HYDROCHLORIDE
     Indication: Aggression
  49. AMISULPRIDE [Concomitant]
     Active Substance: AMISULPRIDE
     Indication: Product used for unknown indication
     Dosage: UNK
     Route: 065
  50. CLOZAPINE [Concomitant]
     Active Substance: CLOZAPINE
     Indication: Product used for unknown indication
     Dosage: UNK
     Route: 065
  51. PIPAMPERONE [Concomitant]
     Active Substance: PIPAMPERONE
     Indication: Product used for unknown indication
     Dosage: UNK
     Route: 065
  52. CARBAMAZEPINE [Concomitant]
     Active Substance: CARBAMAZEPINE
     Indication: Dementia with Lewy bodies
     Dosage: UNK
     Route: 065
  53. CARBAMAZEPINE [Concomitant]
     Active Substance: CARBAMAZEPINE
     Indication: Aggression
  54. BENPERIDOL [Concomitant]
     Active Substance: BENPERIDOL
     Indication: Product used for unknown indication
     Dosage: UNK
     Route: 065
  55. RISPERIDONE [Concomitant]
     Active Substance: RISPERIDONE
     Indication: Product used for unknown indication
     Dosage: UNK
     Route: 065
  56. ARIPIPRAZOLE [Concomitant]
     Active Substance: ARIPIPRAZOLE
     Indication: Product used for unknown indication
     Dosage: UNK
     Route: 065
  57. ZUCLOPENTHIXOL [Concomitant]
     Active Substance: ZUCLOPENTHIXOL
     Indication: Product used for unknown indication
     Dosage: UNK
     Route: 065
  58. PAROXETINE [Concomitant]
     Active Substance: PAROXETINE
     Indication: Product used for unknown indication
     Dosage: 24 MILLIGRAM
     Route: 065
     Dates: start: 20170101

REACTIONS (14)
  - Completed suicide [Fatal]
  - Sleep disorder [Fatal]
  - Aggression [Fatal]
  - Paranoia [Fatal]
  - Fatigue [Fatal]
  - Condition aggravated [Fatal]
  - Rebound effect [Fatal]
  - Paradoxical drug reaction [Fatal]
  - Off label use [Fatal]
  - Delirium [Fatal]
  - Withdrawal syndrome [Fatal]
  - Hangover [Fatal]
  - Agitation [Fatal]
  - Product use in unapproved indication [Unknown]

NARRATIVE: CASE EVENT DATE: 20160101
